FAERS Safety Report 16300303 (Version 1)
Quarter: 2019Q2

REPORT INFORMATION
  Report Type: Spontaneous
  Country: US (occurrence: US)
  Receive Date: 20190510
  Receipt Date: 20190510
  Transmission Date: 20190711
  Serious: No
  Sender: FDA-Public Use
  Company Number: US-BAUSCH-BL-2018-017753

PATIENT
  Sex: Female

DRUGS (2)
  1. PROLENSA [Suspect]
     Active Substance: BROMFENAC SODIUM
     Indication: PREOPERATIVE CARE
     Route: 065
  2. PROLENSA [Suspect]
     Active Substance: BROMFENAC SODIUM
     Indication: OFF LABEL USE

REACTIONS (2)
  - Off label use [Unknown]
  - Burning sensation [Not Recovered/Not Resolved]
